FAERS Safety Report 8095058-5 (Version None)
Quarter: 2012Q1

REPORT INFORMATION
  Report Type: 
  Country: None (occurrence: None)
  Receive Date: 20120125
  Receipt Date: 20120112
  Transmission Date: 20120608
  Serious: Yes (Death)
  Sender: FDA-Public Use
  Company Number: 7106268

PATIENT
  Age: 39 Year
  Sex: Female

DRUGS (2)
  1. LEVOTHYROXINE SODIUM [Suspect]
     Indication: HYPOTHYROIDISM
     Dosage: 125 MCG
     Route: 048
     Dates: start: 20060201
  2. BENETRANSIT (FOOD SUPPLEMENT) [Suspect]
     Indication: CONSTIPATION
     Dosage: OCCASIONALLY 4 DAYS CONSECUTIVE AT MAX
     Route: 048
     Dates: start: 20090201, end: 20090820

REACTIONS (30)
  - ACNE [None]
  - DISEASE RECURRENCE [None]
  - STAPHYLOCOCCUS TEST POSITIVE [None]
  - VENOUS THROMBOSIS [None]
  - HEPATIC NECROSIS [None]
  - MULTI-ORGAN FAILURE [None]
  - AUTOIMMUNE HEPATITIS [None]
  - ASCITES [None]
  - HEPATITIS FULMINANT [None]
  - ACUTE RESPIRATORY DISTRESS SYNDROME [None]
  - LUNG DISORDER [None]
  - IRON OVERLOAD [None]
  - RENAL FAILURE ACUTE [None]
  - INTRA-ABDOMINAL HAEMATOMA [None]
  - GENITAL HERPES [None]
  - POST PROCEDURAL COMPLICATION [None]
  - VENA CAVA THROMBOSIS [None]
  - CELLULITIS [None]
  - ENCEPHALOPATHY [None]
  - HAEMODYNAMIC INSTABILITY [None]
  - WOUND EVISCERATION [None]
  - CYTOLYTIC HEPATITIS [None]
  - SEPSIS [None]
  - LIVER TRANSPLANT [None]
  - HEPATIC FAILURE [None]
  - LUNG INFECTION PSEUDOMONAL [None]
  - HYPOGLYCAEMIA [None]
  - PLEURAL INFECTION [None]
  - ENTEROCOCCUS TEST POSITIVE [None]
  - NEUROMYOPATHY [None]
